FAERS Safety Report 4427535-X (Version None)
Quarter: 2004Q3

REPORT INFORMATION
  Report Type: 
  Country: None (occurrence: None)
  Receive Date: 20040817
  Receipt Date: 20020516
  Transmission Date: 20050211
  Serious: Yes (Disabling, Other)
  Sender: FDA-Public Use
  Company Number: US-MERCK-0205USA02052

PATIENT
  Age: 59 Year
  Sex: Male
  Weight: 79 kg

DRUGS (19)
  1. LOTREL [Concomitant]
     Indication: HYPERTENSION
     Route: 048
     Dates: start: 19990428
  2. AMOXIL [Concomitant]
     Route: 065
     Dates: start: 19990901
  3. WELLBUTRIN [Concomitant]
     Route: 065
     Dates: start: 19990816, end: 20000201
  4. WELLBUTRIN [Concomitant]
     Route: 065
     Dates: start: 19990811, end: 19990815
  5. CELEBREX [Concomitant]
     Route: 065
     Dates: start: 20000101
  6. KLONOPIN [Concomitant]
     Route: 065
     Dates: start: 20010101
  7. CLONIDINE [Concomitant]
     Indication: HYPERTENSION
     Route: 048
     Dates: start: 19990428, end: 20000101
  8. CLONIDINE [Concomitant]
     Route: 048
     Dates: start: 20000128
  9. CATAPRES-TTS-1 [Concomitant]
     Route: 065
     Dates: start: 19991001
  10. LABETALOL HYDROCHLORIDE [Concomitant]
     Indication: HYPERTENSION
     Route: 048
     Dates: start: 19990428, end: 20000801
  11. LABETALOL HYDROCHLORIDE [Concomitant]
     Route: 048
     Dates: start: 20000830
  12. PREVACID [Concomitant]
     Route: 065
     Dates: start: 19991001
  13. CLARITIN [Concomitant]
     Route: 065
     Dates: start: 19990101
  14. NAPRELAN [Concomitant]
     Route: 065
     Dates: start: 19990901
  15. PAXIL [Concomitant]
     Route: 048
     Dates: start: 20000201, end: 20000101
  16. DILANTIN [Concomitant]
     Route: 048
     Dates: start: 20000101, end: 20000201
  17. RANITIDINE [Concomitant]
     Indication: GASTRIC DISORDER
     Route: 048
  18. VIOXX [Suspect]
     Indication: PAIN
     Route: 048
     Dates: start: 19990901, end: 20010101
  19. ZOLOFT [Concomitant]
     Indication: DEPRESSION
     Route: 048
     Dates: start: 20000101

REACTIONS (9)
  - AMNESIA [None]
  - BLOOD CHOLESTEROL INCREASED [None]
  - CAROTID ARTERY STENOSIS [None]
  - CARPAL TUNNEL SYNDROME [None]
  - CEREBRAL INFARCTION [None]
  - DIZZINESS [None]
  - HYPERTENSION [None]
  - INTRACRANIAL ANEURYSM [None]
  - PEPTIC ULCER [None]
